FAERS Safety Report 4263218-7 (Version None)
Quarter: 2004Q1

REPORT INFORMATION
  Report Type: 
  Country: None (occurrence: None)
  Receive Date: 20040104
  Receipt Date: 20040104
  Transmission Date: 20041129
  Serious: Yes (Hospitalization)
  Sender: FDA-Public Use
  Company Number: None

PATIENT
  Age: 19 Year
  Sex: Female
  Weight: 68 kg

DRUGS (4)
  1. ZYPREXA [Suspect]
     Indication: BIPOLAR DISORDER
     Dosage: 7.5 MG AT 11:45AM. 7.5 MG AT 9 PM
     Dates: start: 20031224
  2. ATIVAN [Concomitant]
  3. HALDOL [Concomitant]
  4. BENADRYL [Concomitant]

REACTIONS (2)
  - BLOOD PRESSURE DECREASED [None]
  - HEART RATE DECREASED [None]
